FAERS Safety Report 8459962-8 (Version None)
Quarter: 2012Q2

REPORT INFORMATION
  Report Type: 
  Country: None (occurrence: None)
  Receive Date: 20120622
  Receipt Date: 20120613
  Transmission Date: 20120825
  Serious: Yes (Other)
  Sender: FDA-Public Use
  Company Number: JP-VERTEX PHARMACEUTICALS INC.-AE-2012-007473

PATIENT
  Age: 60 Year
  Sex: Male

DRUGS (17)
  1. CLARITIN [Concomitant]
     Route: 048
     Dates: start: 20120217
  2. POLARAMINE [Concomitant]
     Route: 048
     Dates: start: 20120217, end: 20120315
  3. XYZAL [Concomitant]
     Route: 048
     Dates: start: 20120330
  4. TELAVIC (TELAPREVIR) [Suspect]
     Route: 048
     Dates: start: 20120413, end: 20120419
  5. RIBAVIRIN [Concomitant]
     Indication: HEPATITIS C
     Route: 048
     Dates: start: 20120210, end: 20120301
  6. RIBAVIRIN [Concomitant]
     Route: 048
     Dates: start: 20120302, end: 20120315
  7. RIBAVIRIN [Concomitant]
     Route: 048
     Dates: start: 20120316, end: 20120329
  8. ANTEBATE [Concomitant]
     Route: 061
     Dates: start: 20120217
  9. RIBAVIRIN [Concomitant]
     Route: 048
     Dates: start: 20120330, end: 20120413
  10. PEGINTERFERON ALFA-2A [Concomitant]
  11. RESTAMIN [Concomitant]
     Route: 061
     Dates: start: 20120217
  12. TELAVIC (TELAPREVIR) [Suspect]
     Indication: HEPATITIS C
     Route: 048
     Dates: start: 20120210, end: 20120412
  13. PEGINTERFERON ALFA-2A [Concomitant]
     Indication: HEPATITIS C
     Route: 058
     Dates: start: 20120210
  14. MUCOSTA [Concomitant]
     Route: 048
     Dates: start: 20120210
  15. HIRUDOID [Concomitant]
     Route: 051
     Dates: start: 20120217
  16. XYZAL [Concomitant]
     Route: 048
     Dates: start: 20120316, end: 20120329
  17. CONFATANIN [Concomitant]
     Route: 048
     Dates: start: 20120210

REACTIONS (5)
  - ANAEMIA [None]
  - PLATELET COUNT DECREASED [None]
  - RASH [None]
  - PRURITUS [None]
  - NEUTROPHIL COUNT DECREASED [None]
